FAERS Safety Report 15063912 (Version 1)
Quarter: 2018Q2

REPORT INFORMATION
  Report Type: Spontaneous
  Country: US (occurrence: US)
  Receive Date: 20180625
  Receipt Date: 20180625
  Transmission Date: 20180711
  Serious: No
  Sender: FDA-Public Use
  Company Number: US-AMGEN-USASP2016058512

PATIENT
  Age: 64 Year
  Sex: Female
  Weight: 67.57 kg

DRUGS (12)
  1. REPATHA [Suspect]
     Active Substance: EVOLOCUMAB
     Indication: HYPERLIPIDAEMIA
     Dosage: 140 MG/ML, Q2WK
     Route: 058
     Dates: start: 201601, end: 20160427
  2. VITAMIN C [Concomitant]
     Active Substance: ASCORBIC ACID
     Dosage: 1000 MG, BID
     Dates: start: 20140805
  3. MEGARED OMEGA 3 KRILL OIL [Concomitant]
     Dosage: UNK UNK, QD
     Dates: start: 20140805
  4. ASPIRIN                            /00002701/ [Concomitant]
     Active Substance: ASPIRIN
     Dosage: 81 MG, QD
     Dates: start: 20140805
  5. TRIAMCINOLONE [Concomitant]
     Active Substance: TRIAMCINOLONE
     Dosage: 0.1 %, UNK
     Dates: start: 20140805
  6. LOSARTAN POTASSIUM. [Concomitant]
     Active Substance: LOSARTAN POTASSIUM
     Dosage: 100 MG, QD
     Dates: start: 20140805
  7. NORCO [Concomitant]
     Active Substance: ACETAMINOPHEN\HYDROCODONE BITARTRATE
     Dosage: 325 MG, 1 TABLET EVERY 8 HOURS AS NEEDED
     Dates: start: 20140805
  8. VITAMIN D                          /00107901/ [Concomitant]
     Active Substance: ERGOCALCIFEROL
     Dosage: 1000 IU, BID
     Dates: start: 20160427
  9. AMLODIPINE [Concomitant]
     Active Substance: AMLODIPINE BESYLATE
     Dosage: 2.5 MG, QD
     Route: 048
     Dates: start: 20160323
  10. PRAVASTATIN. [Concomitant]
     Active Substance: PRAVASTATIN
     Dosage: 40 MG, QD
     Dates: start: 20150430
  11. FOLIC ACID. [Concomitant]
     Active Substance: FOLIC ACID
     Dosage: 1 MG, QD
     Dates: start: 20140805
  12. VITAMIN B12 [Concomitant]
     Active Substance: CYANOCOBALAMIN
     Dosage: 5000 MUG, QD
     Dates: start: 20140805

REACTIONS (9)
  - Pain [Recovering/Resolving]
  - Hypertension [Unknown]
  - Malaise [Unknown]
  - Pain in extremity [Recovering/Resolving]
  - Vomiting [Unknown]
  - Fatigue [Unknown]
  - Influenza like illness [Unknown]
  - Headache [Unknown]
  - Back pain [Unknown]
